FAERS Safety Report 4766041-X (Version None)
Quarter: 2005Q3

REPORT INFORMATION
  Report Type: 
  Country: None (occurrence: None)
  Receive Date: 20050912
  Receipt Date: 20050825
  Transmission Date: 20060218
  Serious: Yes (Other)
  Sender: FDA-Public Use
  Company Number: CA-GLAXOSMITHKLINE-B0392839A

PATIENT
  Sex: Female

DRUGS (1)
  1. PAROXETINE [Suspect]

REACTIONS (3)
  - INTRAVENTRICULAR HAEMORRHAGE [None]
  - NERVE INJURY [None]
  - SUBARACHNOID HAEMORRHAGE [None]
